FAERS Safety Report 9638774 (Version 1)
Quarter: 2013Q4

REPORT INFORMATION
  Report Type: Spontaneous
  Country: US (occurrence: US)
  Receive Date: 20131022
  Receipt Date: 20131022
  Transmission Date: 20140711
  Serious: No
  Sender: FDA-Public Use
  Company Number: US-BRISTOL-MYERS SQUIBB COMPANY-19193457

PATIENT
  Age: 84 Year
  Sex: Male
  Weight: 92.97 kg

DRUGS (13)
  1. ELIQUIS [Suspect]
     Indication: ATRIAL FIBRILLATION
  2. UROXATRAL [Concomitant]
  3. CHLORHEXIDINE GLUCONATE [Concomitant]
  4. HYDROCHLOROTHIAZIDE [Concomitant]
  5. LEVOTHYROXINE [Concomitant]
  6. SINGULAIR [Concomitant]
  7. ENALAPRIL [Concomitant]
  8. PANTOPRAZOLE [Concomitant]
  9. CLONAZEPAM [Concomitant]
  10. CRESTOR [Concomitant]
  11. AMIODARONE [Concomitant]
  12. FUROSEMIDE [Concomitant]
  13. VITAMIN B12 [Concomitant]

REACTIONS (2)
  - Rash [Unknown]
  - Pruritus [Unknown]
